FAERS Safety Report 13523449 (Version 3)
Quarter: 2018Q2

REPORT INFORMATION
  Report Type: Spontaneous
  Country: US (occurrence: US)
  Receive Date: 20170508
  Receipt Date: 20180508
  Transmission Date: 20180711
  Serious: No
  Sender: FDA-Public Use
  Company Number: US-VIFOR (INTERNATIONAL) INC.-VIT-2017-03847

PATIENT
  Age: 62 Year
  Sex: Male

DRUGS (24)
  1. FISH OIL [Concomitant]
     Active Substance: FISH OIL
  2. FUROSEMIDE. [Concomitant]
     Active Substance: FUROSEMIDE
  3. METOCLOPRAMIDE HYDROCHLORIDE. [Concomitant]
     Active Substance: METOCLOPRAMIDE HYDROCHLORIDE
  4. SENNA ALEXANDRINA [Concomitant]
     Active Substance: SENNA LEAF
  5. MAGNESIUM [Concomitant]
     Active Substance: MAGNESIUM
  6. NOVOLOG [Concomitant]
     Active Substance: INSULIN ASPART
  7. PROCRIT [Concomitant]
     Active Substance: ERYTHROPOIETIN
  8. CALCITRIOL. [Concomitant]
     Active Substance: CALCITRIOL
  9. NIACIN. [Concomitant]
     Active Substance: NIACIN
  10. TORASEMIDE [Concomitant]
     Active Substance: TORSEMIDE
  11. VELTASSA [Suspect]
     Active Substance: PATIROMER
     Indication: HYPERKALAEMIA
     Route: 048
     Dates: start: 20160825
  12. SERTRALINE HYDROCHLORIDE. [Concomitant]
     Active Substance: SERTRALINE HYDROCHLORIDE
  13. ASCORBIC ACID. [Concomitant]
     Active Substance: ASCORBIC ACID
  14. ZOLOFT [Concomitant]
     Active Substance: SERTRALINE HYDROCHLORIDE
  15. SODIUM BICARBONATE. [Concomitant]
     Active Substance: SODIUM BICARBONATE
  16. ALLOPURINOL. [Concomitant]
     Active Substance: ALLOPURINOL
  17. CALCIUM [Concomitant]
     Active Substance: CALCIUM
  18. LISINOPRIL. [Concomitant]
     Active Substance: LISINOPRIL
  19. FERROUS SULFATE. [Concomitant]
     Active Substance: FERROUS SULFATE
  20. SUPER B COMPLEX [Concomitant]
     Active Substance: CYANOCOBALAMIN\DEXPANTHENOL\NIACINAMIDE\PYRIDOXINE HYDROCHLORIDE\RIBOFLAVIN 5^-PHOSPHATE SODIUM\THIAMINE HYDROCHLORIDE\VITAMIN B COMPLEX
  21. TUMS [Concomitant]
     Active Substance: CALCIUM CARBONATE
  22. ASPIRIN-81 [Concomitant]
  23. LEVOTHYROXINE SODIUM. [Concomitant]
     Active Substance: LEVOTHYROXINE SODIUM
  24. SIMVASTATIN. [Concomitant]
     Active Substance: SIMVASTATIN

REACTIONS (6)
  - Nausea [Unknown]
  - Head discomfort [Unknown]
  - Malaise [Unknown]
  - Oropharyngeal pain [Unknown]
  - Vomiting [Unknown]
  - Drug dose omission [Unknown]

NARRATIVE: CASE EVENT DATE: 2017
